FAERS Safety Report 4621670-9 (Version None)
Quarter: 2005Q1

REPORT INFORMATION
  Report Type: 
  Country: None (occurrence: None)
  Receive Date: 20050329
  Receipt Date: 20050314
  Transmission Date: 20050727
  Serious: Yes (Life-Threatening)
  Sender: FDA-Public Use
  Company Number: 213327

PATIENT
  Age: 71 Year
  Sex: Female

DRUGS (1)
  1. RITUXAN [Suspect]
     Indication: IDIOPATHIC THROMBOCYTOPENIC PURPURA
     Dates: start: 20050201, end: 20050305

REACTIONS (4)
  - SWELLING FACE [None]
  - SWOLLEN TONGUE [None]
  - THERAPY NON-RESPONDER [None]
  - TONGUE DISCOLOURATION [None]
